FAERS Safety Report 23766639 (Version 1)
Quarter: 2024Q2

REPORT INFORMATION
  Report Type: Report from Study
  Country: GB (occurrence: GB)
  Receive Date: 20240422
  Receipt Date: 20240422
  Transmission Date: 20240716
  Serious: Yes (Hospitalization)
  Sender: FDA-Public Use
  Company Number: GB-SANDOZ-SDZ2023GB053697

PATIENT
  Sex: Male

DRUGS (1)
  1. OMNITROPE [Suspect]
     Active Substance: SOMATROPIN
     Indication: Endocrine disorder
     Dosage: 0.2 MG
     Route: 058
     Dates: start: 20231105

REACTIONS (3)
  - Herpes zoster [Recovered/Resolved with Sequelae]
  - Gastroenteritis viral [Unknown]
  - Wrong technique in product usage process [Unknown]
